FAERS Safety Report 4505369-5 (Version None)
Quarter: 2004Q4

REPORT INFORMATION
  Report Type: 
  Country: None (occurrence: None)
  Receive Date: 20041118
  Receipt Date: 20041118
  Transmission Date: 20050328
  Serious: Yes (Other)
  Sender: FDA-Public Use
  Company Number: None

PATIENT
  Sex: Female
  Weight: 68.0396 kg

DRUGS (3)
  1. EFFEXOR [Suspect]
     Indication: MAJOR DEPRESSION
     Dosage: 300MG  ONCE A DAY ORAL
     Route: 048
     Dates: start: 20000101, end: 20041110
  2. SEROQUEL [Concomitant]
  3. LUVOX [Concomitant]

REACTIONS (3)
  - DRUG WITHDRAWAL SYNDROME [None]
  - EYE DISORDER [None]
  - PARAESTHESIA [None]
